FAERS Safety Report 9285482 (Version 4)
Quarter: 2013Q4

REPORT INFORMATION
  Report Type: Spontaneous
  Country: US (occurrence: US)
  Receive Date: 20130513
  Receipt Date: 20131104
  Transmission Date: 20140711
  Serious: No
  Sender: FDA-Public Use
  Company Number: US-PFIZER INC-2013130321

PATIENT
  Sex: Male

DRUGS (1)
  1. SKELAXIN [Suspect]
     Dosage: UNK

REACTIONS (3)
  - Pain [Unknown]
  - Gait disturbance [Unknown]
  - Drug dispensing error [Unknown]
